FAERS Safety Report 8046186-1 (Version None)
Quarter: 2012Q1

REPORT INFORMATION
  Report Type: 
  Country: None (occurrence: None)
  Receive Date: 20120112
  Receipt Date: 20120112
  Transmission Date: 20120608
  Serious: Yes (Other)
  Sender: FDA-Public Use
  Company Number: None

PATIENT
  Age: 60 Year
  Sex: Male

DRUGS (2)
  1. REVLIMID [Suspect]
     Indication: MULTIPLE MYELOMA
     Dosage: 10MG QD ORALLY
     Route: 048
     Dates: start: 20110401, end: 20110601
  2. ACYCLOVIR [Concomitant]

REACTIONS (3)
  - PHARYNGITIS [None]
  - WEIGHT DECREASED [None]
  - THROMBOCYTOPENIA [None]
